FAERS Safety Report 23745370 (Version 1)
Quarter: 2024Q2

REPORT INFORMATION
  Report Type: Spontaneous
  Country: IN (occurrence: IN)
  Receive Date: 20240416
  Receipt Date: 20240416
  Transmission Date: 20240715
  Serious: Yes (Other)
  Sender: FDA-Public Use
  Company Number: IN-KOANAAP-SML-IN-2024-00298

PATIENT
  Age: 37 Year
  Sex: Female

DRUGS (2)
  1. IMATINIB [Suspect]
     Active Substance: IMATINIB
     Indication: Chronic myeloid leukaemia
  2. HYDROXYUREA [Suspect]
     Active Substance: HYDROXYUREA
     Indication: Chronic myeloid leukaemia

REACTIONS (1)
  - Heavy chain disease [Recovered/Resolved]
